FAERS Safety Report 23896585 (Version 8)
Quarter: 2024Q2

REPORT INFORMATION
  Report Type: Spontaneous
  Country: US (occurrence: US)
  Receive Date: 20240524
  Receipt Date: 20240625
  Transmission Date: 20240716
  Serious: No
  Sender: FDA-Public Use
  Company Number: US-BIOGEN-2024BI01265870

PATIENT
  Sex: Female

DRUGS (4)
  1. VUMERITY [Suspect]
     Active Substance: DIROXIMEL FUMARATE
     Indication: Multiple sclerosis
     Dosage: ALSO REPORTED AS 17-MAY-2024?TAKE 1 CAPSULE (231MG) BY MOUTH TWICE DAILY FOR THE FIRST 7 DAYS
     Route: 050
     Dates: start: 20240514, end: 20240520
  2. VUMERITY [Suspect]
     Active Substance: DIROXIMEL FUMARATE
     Dosage: THEN TAKE 2 CAPSULES (462MG) TWICE DAILY THEREAFTER
     Route: 050
     Dates: start: 202405, end: 202405
  3. ZINC PICOLINATE [Concomitant]
     Active Substance: ZINC PICOLINATE
     Route: 050
  4. POTASSIUM [Concomitant]
     Active Substance: POTASSIUM
     Route: 050

REACTIONS (13)
  - Fatigue [Not Recovered/Not Resolved]
  - Limb discomfort [Not Recovered/Not Resolved]
  - Discomfort [Not Recovered/Not Resolved]
  - Urinary tract infection [Not Recovered/Not Resolved]
  - Genital swelling [Not Recovered/Not Resolved]
  - Muscle spasms [Not Recovered/Not Resolved]
  - Insomnia [Unknown]
  - Band sensation [Unknown]
  - Malaise [Unknown]
  - Pruritus [Not Recovered/Not Resolved]
  - Rash [Unknown]
  - Burning sensation [Unknown]
  - Nausea [Unknown]

NARRATIVE: CASE EVENT DATE: 20240101
